FAERS Safety Report 8952919 (Version 1)
Quarter: 2012Q4

REPORT INFORMATION
  Report Type: 
  Country: US (occurrence: US)
  Receive Date: 20121203
  Receipt Date: 20121203
  Transmission Date: 20130627
  Serious: Yes (Other)
  Sender: FDA-Public Use
  Company Number: CHPA2012US024002

PATIENT
  Age: 60 Year
  Sex: Female

DRUGS (6)
  1. EXCEDRIN EXTRA STRENGTH [Suspect]
     Indication: HEADACHE
     Dosage: Unk, EVERY 4 to 6 HOURS
     Route: 048
  2. DRUG THERAPY NOS [Concomitant]
     Dosage: Unk, Unk
  3. DRUG THERAPY NOS [Concomitant]
     Dosage: Unk, Unk
  4. BAYER ASPIRIN [Concomitant]
     Dosage: Unk, Unk
  5. TYLENOL W/CODEINE [Concomitant]
     Dosage: Unk, Unk
  6. MORPHINE [Concomitant]
     Dosage: Unk, Unk

REACTIONS (8)
  - Concussion [Recovered/Resolved]
  - Spinal fracture [Recovered/Resolved]
  - Head injury [Recovered/Resolved]
  - Headache [Recovered/Resolved]
  - Muscle tightness [Recovered/Resolved]
  - Muscle spasms [Recovered/Resolved]
  - Dyspnoea [Recovered/Resolved]
  - Inappropriate schedule of drug administration [Unknown]
